FAERS Safety Report 10037999 (Version 1)
Quarter: 2014Q1

REPORT INFORMATION
  Report Type: Spontaneous
  Country: US (occurrence: None)
  Receive Date: 20140306
  Receipt Date: 20140306
  Transmission Date: 20141002
  Serious: Yes (Life-Threatening)
  Sender: FDA-Public Use
  Company Number: 163-21880-12120270

PATIENT
  Age: 80 Year
  Sex: Male

DRUGS (1)
  1. REVLIMID (LENALIDOMIDE) (2.5. MILLIGRAM, CAPSULES) [Suspect]
     Indication: CHRONIC LYMPHOCYTIC LEUKAEMIA
     Route: 048
     Dates: start: 20120423, end: 20120517

REACTIONS (1)
  - Pneumonia [None]
